FAERS Safety Report 26175924 (Version 2)
Quarter: 2025Q4

REPORT INFORMATION
  Report Type: Spontaneous
  Country: US (occurrence: US)
  Receive Date: 20251218
  Receipt Date: 20251224
  Transmission Date: 20260119
  Serious: Yes (Other)
  Sender: APELLIS PHARMACEUTICALS
  Company Number: US-APELLIS-2025-APL-0002430

PATIENT

DRUGS (9)
  1. SYFOVRE [Suspect]
     Active Substance: PEGCETACOPLAN
     Indication: Dry age-related macular degeneration
     Route: 031
  2. FINASTERIDE [Concomitant]
     Active Substance: FINASTERIDE
     Indication: Product used for unknown indication
     Dosage: 5.000MG
  3. LEVOTHYROXINE SODIUM [Concomitant]
     Active Substance: LEVOTHYROXINE SODIUM
     Indication: Product used for unknown indication
     Dosage: 200 MCG (0.2 MG)
     Route: 048
  4. LOSARTAN POTASSIUM [Concomitant]
     Active Substance: LOSARTAN POTASSIUM
     Indication: Product used for unknown indication
     Dosage: 50.000MG
     Route: 048
  5. HYDROCHLOROTHIAZIDE\TRIAMTERENE [Concomitant]
     Active Substance: HYDROCHLOROTHIAZIDE\TRIAMTERENE
     Indication: Product used for unknown indication
     Dosage: 50MG/75MG
     Route: 048
  6. DOXAZOSIN MESYLATE [Concomitant]
     Active Substance: DOXAZOSIN MESYLATE
     Indication: Product used for unknown indication
     Dosage: 4.000MG
     Route: 048
  7. FLUTICASONE PROPIONATE [Concomitant]
     Active Substance: FLUTICASONE PROPIONATE
     Indication: Product used for unknown indication
     Dosage: 50 MCG/ACTUATION SPRAY,SUSPENSION:, DISP. 48 GRAM NR
  8. METHYLPHENIDATE [Concomitant]
     Active Substance: METHYLPHENIDATE
     Indication: Product used for unknown indication
     Dosage: 20 MG 8 HR EXTENDED RELEASE TABLET
  9. VABYSMO [Concomitant]
     Active Substance: FARICIMAB-SVOA
     Indication: Neovascular age-related macular degeneration

REACTIONS (6)
  - Uveitis [Unknown]
  - Neovascular age-related macular degeneration [Unknown]
  - Neovascular age-related macular degeneration [Unknown]
  - Choroidal neovascularisation [Unknown]
  - Choroidal neovascularisation [Unknown]
  - Ciliary zonular dehiscence [Unknown]
